FAERS Safety Report 13853217 (Version 1)
Quarter: 2017Q3

REPORT INFORMATION
  Report Type: Spontaneous
  Country: US (occurrence: US)
  Receive Date: 20170809
  Receipt Date: 20170809
  Transmission Date: 20171127
  Serious: Yes (Life-Threatening, Hospitalization)
  Sender: FDA-Public Use
  Company Number: None

PATIENT
  Sex: Male
  Weight: 90 kg

DRUGS (11)
  1. LISINOPRIL. [Concomitant]
     Active Substance: LISINOPRIL
  2. IMIQUIMOD 5% [Suspect]
     Active Substance: IMIQUIMOD
     Indication: PRECANCEROUS SKIN LESION
     Route: 061
     Dates: start: 20160328, end: 20160401
  3. SINGULAIR [Concomitant]
     Active Substance: MONTELUKAST SODIUM
  4. LIPITOR [Concomitant]
     Active Substance: ATORVASTATIN CALCIUM
  5. FINASTERIDE. [Concomitant]
     Active Substance: FINASTERIDE
  6. ALDACTONE [Concomitant]
     Active Substance: SPIRONOLACTONE
  7. VITAMIN E [Concomitant]
     Active Substance: .ALPHA.-TOCOPHEROL
  8. LANSOPRAZOLE. [Concomitant]
     Active Substance: LANSOPRAZOLE
  9. VITAMIN D3 [Concomitant]
     Active Substance: CHOLECALCIFEROL
  10. AAREDS 2 [Concomitant]
  11. ASPIRIN. [Concomitant]
     Active Substance: ASPIRIN

REACTIONS (4)
  - Pneumonia influenzal [None]
  - Immune system disorder [None]
  - Atrial fibrillation [None]
  - Sepsis [None]

NARRATIVE: CASE EVENT DATE: 20160331
